FAERS Safety Report 8598160 (Version 2)
Quarter: 2015Q4

REPORT INFORMATION
  Report Type: Spontaneous
  Country: US (occurrence: US)
  Receive Date: 20120605
  Receipt Date: 20151104
  Transmission Date: 20160305
  Serious: No
  Sender: FDA-Public Use
  Company Number: US-AMGEN-USASP2012029507

PATIENT
  Age: 47 Year
  Sex: Female

DRUGS (4)
  1. ENBREL [Suspect]
     Active Substance: ETANERCEPT
     Indication: RHEUMATOID ARTHRITIS
     Dosage: 25 MG, 2 TIMES/WK
     Route: 058
  2. S-ADENOSYLMETHIONINE SULFATE P-TOLUENESULFONATE [Concomitant]
     Active Substance: ADEMETIONINE SULFATE TOSILATE
     Dosage: UNK
  3. HYDROXYTRYPTOPHAN [Concomitant]
     Active Substance: OXITRIPTAN
     Dosage: UNK
  4. L-TYROSINE [Concomitant]
     Dosage: 500 MG, UNK

REACTIONS (1)
  - Infection [Recovered/Resolved]
